FAERS Safety Report 5396696-0 (Version None)
Quarter: 2007Q3

REPORT INFORMATION
  Report Type: 
  Country: None (occurrence: None)
  Receive Date: 20070725
  Receipt Date: 20061114
  Transmission Date: 20080115
  Serious: No
  Sender: FDA-Public Use
  Company Number: US-AMGEN-KDL200177

PATIENT
  Sex: Male

DRUGS (15)
  1. EPOGEN [Suspect]
     Indication: RENAL FAILURE CHRONIC
     Route: 042
     Dates: start: 20051101
  2. COREG [Concomitant]
  3. VITAMIN B6 [Concomitant]
  4. VITAMIN B-12 [Concomitant]
  5. AMITRIPTYLINE HCL [Concomitant]
  6. INSULIN [Concomitant]
  7. ASPIRIN [Concomitant]
  8. NIACIN [Concomitant]
  9. TPN [Concomitant]
  10. MULTI-VITAMINS [Concomitant]
  11. PLAVIX [Concomitant]
  12. PHOSLO [Concomitant]
  13. KEFLEX [Concomitant]
  14. ZOCOR [Concomitant]
  15. ALTACE [Concomitant]

REACTIONS (1)
  - THERAPEUTIC RESPONSE DECREASED [None]
